FAERS Safety Report 5254912-X (Version None)
Quarter: 2007Q1

REPORT INFORMATION
  Report Type: 
  Country: None (occurrence: None)
  Receive Date: 20070302
  Receipt Date: 20070302
  Transmission Date: 20070707
  Serious: Yes (Other)
  Sender: FDA-Public Use
  Company Number: None

PATIENT
  Age: 53 Year
  Sex: Male
  Weight: 86.1834 kg

DRUGS (1)
  1. MEVACOR [Suspect]
     Indication: BLOOD CHOLESTEROL
     Dosage: 1 1X PO
     Route: 048
     Dates: start: 20050615, end: 20060516

REACTIONS (3)
  - DEPRESSION [None]
  - MARITAL PROBLEM [None]
  - MOOD ALTERED [None]
